FAERS Safety Report 8623406-3 (Version None)
Quarter: 2012Q3

REPORT INFORMATION
  Report Type: 
  Country: None (occurrence: None)
  Receive Date: 20120827
  Receipt Date: 20120820
  Transmission Date: 20120928
  Serious: Yes (Hospitalization)
  Sender: FDA-Public Use
  Company Number: PHHY2012GB072100

PATIENT
  Sex: Male
  Weight: 2.2 kg

DRUGS (7)
  1. CHLORPROMAZINE HCL [Suspect]
     Route: 064
  2. DIHYDROCODEINE BITARTRATE INJ [Suspect]
     Route: 064
  3. FLUOXETINE HCL [Suspect]
  4. SEROQUEL [Suspect]
     Route: 064
  5. CITALOPRAM HYDROBROMIDE [Suspect]
     Route: 064
  6. PROPRANOLOL [Suspect]
     Route: 064
  7. OMEPRAZOLE [Suspect]

REACTIONS (6)
  - PREMATURE BABY [None]
  - HYPOCALCAEMIA [None]
  - PNEUMOTHORAX [None]
  - DRUG WITHDRAWAL SYNDROME NEONATAL [None]
  - FOETAL EXPOSURE DURING PREGNANCY [None]
  - NEONATAL RESPIRATORY DISTRESS SYNDROME [None]
